FAERS Safety Report 5131903-0 (Version None)
Quarter: 2006Q4

REPORT INFORMATION
  Report Type: 
  Country: None (occurrence: None)
  Receive Date: 20061016
  Receipt Date: 20061003
  Transmission Date: 20070319
  Serious: Yes (Other)
  Sender: FDA-Public Use
  Company Number: 2006122432

PATIENT
  Age: 86 Year
  Sex: Female
  Weight: 56.6996 kg

DRUGS (8)
  1. ARTHROTEC [Suspect]
     Indication: ARTHRITIS
     Dosage: (2 IN 1 D)
     Dates: start: 20060101, end: 20060101
  2. ZOLOFT [Suspect]
     Indication: FEELING OF RELAXATION
  3. DETROL [Suspect]
  4. LIPITOR [Suspect]
     Dosage: (20 MG)
  5. CLARITIN [Concomitant]
  6. ALL OTHER THERAPEUTIC PRODUCTS (ALL OTHER THERAPEUTIC PRODUCTS) [Concomitant]
  7. ACETAMINOPHEN [Concomitant]
  8. PREVACID [Concomitant]

REACTIONS (4)
  - ATRIAL FIBRILLATION [None]
  - FLUID RETENTION [None]
  - GAIT DISTURBANCE [None]
  - ULCER HAEMORRHAGE [None]
